FAERS Safety Report 15555245 (Version 1)
Quarter: 2018Q4

REPORT INFORMATION
  Report Type: Spontaneous
  Country: US (occurrence: US)
  Receive Date: 20181023
  Receipt Date: 20181023
  Transmission Date: 20190205
  Serious: Yes (Hospitalization)
  Sender: FDA-Public Use
  Company Number: None

PATIENT
  Age: 70 Year
  Sex: Female
  Weight: 100 kg

DRUGS (14)
  1. LIPITOR [Concomitant]
     Active Substance: ATORVASTATIN CALCIUM
  2. MELATONIN [Concomitant]
     Active Substance: MELATONIN
  3. WARFARIN [Suspect]
     Active Substance: WARFARIN
     Indication: ATRIAL FIBRILLATION
     Dosage: ?          OTHER FREQUENCY:Q MOND ;?
     Route: 048
  4. GLUCOTROL [Concomitant]
     Active Substance: GLIPIZIDE
  5. GLUCOPHAGE [Concomitant]
     Active Substance: METFORMIN HYDROCHLORIDE
  6. SINGULAIR [Concomitant]
     Active Substance: MONTELUKAST SODIUM
  7. ANORO ELLIPTA [Concomitant]
     Active Substance: UMECLIDINIUM BROMIDE\VILANTEROL TRIFENATATE
  8. TESSALON [Concomitant]
     Active Substance: BENZONATATE
  9. XANAX [Concomitant]
     Active Substance: ALPRAZOLAM
  10. CARDIZEM CD [Concomitant]
     Active Substance: DILTIAZEM HYDROCHLORIDE
  11. SYNTHROID [Concomitant]
     Active Substance: LEVOTHYROXINE SODIUM
  12. ALBUTEROL. [Concomitant]
     Active Substance: ALBUTEROL
  13. DUONEB [Concomitant]
     Active Substance: ALBUTEROL SULFATE\IPRATROPIUM BROMIDE
  14. ULTRAM [Concomitant]
     Active Substance: TRAMADOL HYDROCHLORIDE

REACTIONS (8)
  - Polyp [None]
  - Lower gastrointestinal haemorrhage [None]
  - Shock haemorrhagic [None]
  - Colitis [None]
  - Therapy cessation [None]
  - Iron deficiency anaemia [None]
  - Colon adenoma [None]
  - Colitis ischaemic [None]

NARRATIVE: CASE EVENT DATE: 20180807
